FAERS Safety Report 7222227-6 (Version None)
Quarter: 2011Q1

REPORT INFORMATION
  Report Type: 
  Country: None (occurrence: None)
  Receive Date: 20110103
  Receipt Date: 20101221
  Transmission Date: 20110831
  Serious: Yes (Other)
  Sender: FDA-Public Use
  Company Number: 2010SP065913

PATIENT
  Age: 34 Year
  Sex: Male
  Weight: 79.3795 kg

DRUGS (4)
  1. NASONEX [Suspect]
     Indication: PRODUCT USED FOR UNKNOWN INDICATION
     Dosage: 4 DF;BID;NAS
     Route: 045
  2. RANITIDINE [Concomitant]
  3. VITAMIN D [Concomitant]
  4. OMEGA 3-6-9 [Concomitant]

REACTIONS (5)
  - ANXIETY [None]
  - PRESYNCOPE [None]
  - DEPRESSED MOOD [None]
  - MENTAL IMPAIRMENT [None]
  - MYALGIA [None]
